FAERS Safety Report 20945737 (Version 5)
Quarter: 2023Q4

REPORT INFORMATION
  Report Type: Spontaneous
  Country: US (occurrence: US)
  Receive Date: 20220610
  Receipt Date: 20231205
  Transmission Date: 20240110
  Serious: No
  Sender: FDA-Public Use
  Company Number: US-Blueprint Medicines Corporation-SP-US-2022-001743

PATIENT
  Age: 69 Year
  Sex: Female

DRUGS (12)
  1. AYVAKIT [Suspect]
     Active Substance: AVAPRITINIB
     Indication: Systemic mastocytosis
     Dosage: TAKE 1 TABLET 100 MG BY MOUTH EVERY OTHER DAY. ALTERNATING WITH 200 MG TAB EVERY OTHER DAY
     Route: 048
     Dates: start: 20211001
  2. AYVAKIT [Suspect]
     Active Substance: AVAPRITINIB
     Indication: Advanced systemic mastocytosis
     Dosage: TAKE 1 TABLET 100 MG BY MOUTH EVERY OTHER DAY. ALTERNATING WITH 200 MG TAB EVERY OTHER DAY
     Route: 048
     Dates: start: 20211001
  3. AYVAKIT [Suspect]
     Active Substance: AVAPRITINIB
     Indication: Advanced systemic mastocytosis
     Dosage: ALTERNATE WITH 100MG DOSE EVERY OTHER DAY.
     Route: 048
     Dates: start: 20211001
  4. AYVAKIT [Suspect]
     Active Substance: AVAPRITINIB
     Route: 048
     Dates: start: 20211001
  5. AYVAKIT [Suspect]
     Active Substance: AVAPRITINIB
     Dosage: ALTERNATE WITH 200MG DOSE EVERY OTHER DAY
     Route: 048
     Dates: start: 20211001
  6. AYVAKIT [Suspect]
     Active Substance: AVAPRITINIB
     Dosage: ALTERNATE WITH 100MG DOSE EVERY OTHER DAY.
     Route: 048
     Dates: start: 20211001
  7. AYVAKIT [Suspect]
     Active Substance: AVAPRITINIB
     Route: 048
     Dates: start: 20211011
  8. AYVAKIT [Suspect]
     Active Substance: AVAPRITINIB
     Route: 048
     Dates: start: 20211011
  9. AYVAKIT [Suspect]
     Active Substance: AVAPRITINIB
     Route: 048
     Dates: start: 20211001
  10. AYVAKIT [Suspect]
     Active Substance: AVAPRITINIB
     Dosage: TAKE 100 MG TABLET BY MOUTH ALTERNATING DAILY DOSING WITH 200 MG TABLET
     Route: 048
     Dates: start: 20211011
  11. AYVAKIT [Suspect]
     Active Substance: AVAPRITINIB
     Dosage: TAKE 100 MG TABLET BY MOUTH ALTERNATING DAILY DOSING WITH 200 MG TABLET
     Route: 048
     Dates: start: 20211011
  12. AYVAKIT [Suspect]
     Active Substance: AVAPRITINIB
     Route: 048
     Dates: start: 20211011

REACTIONS (7)
  - Joint swelling [Not Recovered/Not Resolved]
  - Peripheral swelling [Not Recovered/Not Resolved]
  - Swelling face [Not Recovered/Not Resolved]
  - Musculoskeletal stiffness [Not Recovered/Not Resolved]
  - Memory impairment [Unknown]
  - Brain fog [Not Recovered/Not Resolved]
  - Aphasia [Not Recovered/Not Resolved]

NARRATIVE: CASE EVENT DATE: 20221011
